FAERS Safety Report 22244503 (Version 8)
Quarter: 2023Q4

REPORT INFORMATION
  Report Type: Spontaneous
  Country: DE (occurrence: None)
  Receive Date: 20230424
  Receipt Date: 20231227
  Transmission Date: 20240110
  Serious: Yes (Other)
  Sender: FDA-Public Use
  Company Number: DE-ROCHE-3331109

PATIENT
  Sex: Female

DRUGS (2)
  1. OCREVUS [Suspect]
     Active Substance: OCRELIZUMAB
     Indication: Multiple sclerosis
     Route: 065
     Dates: start: 2021
  2. CORTISONE [Suspect]
     Active Substance: CORTISONE
     Indication: Product used for unknown indication
     Route: 065

REACTIONS (18)
  - Multiple sclerosis [Not Recovered/Not Resolved]
  - Multiple sclerosis relapse [Unknown]
  - Urinary retention [Unknown]
  - Coronavirus infection [Unknown]
  - Gait disturbance [Unknown]
  - Headache [Unknown]
  - Dizziness exertional [Unknown]
  - Cognitive disorder [Unknown]
  - Neuralgia [Unknown]
  - Drug ineffective [Unknown]
  - Vaccination failure [Unknown]
  - Fatigue [Unknown]
  - Hypoaesthesia [Unknown]
  - B-lymphocyte count decreased [Unknown]
  - Immunodeficiency [Unknown]
  - Growing pains [Unknown]
  - Hypoaesthesia [Unknown]
  - Gait disturbance [Unknown]

NARRATIVE: CASE EVENT DATE: 20230101
